FAERS Safety Report 10908483 (Version 1)
Quarter: 2015Q1

REPORT INFORMATION
  Report Type: Spontaneous
  Country: US (occurrence: None)
  Receive Date: 20150309
  Receipt Date: 20150309
  Transmission Date: 20150721
  Serious: Yes (Death)
  Sender: FDA-Public Use
  Company Number: None

PATIENT
  Age: 66 Year
  Sex: Male

DRUGS (18)
  1. LORAZEPAM (ATIVAN) [Concomitant]
  2. DOCUSATE SODIUM (COLACE) [Concomitant]
  3. DRONABINOL (MARINOL) [Concomitant]
  4. REVLIMID [Suspect]
     Active Substance: LENALIDOMIDE
     Indication: PLASMA CELL MYELOMA
     Dosage: 10MG, DAILY X21D/28D, ORAL
     Route: 048
     Dates: start: 201303, end: 201412
  5. INSULINE NPH HUMAN (HUMULIN N) [Concomitant]
  6. OMEPRAZOLE MAGNESIUM. [Concomitant]
     Active Substance: OMEPRAZOLE MAGNESIUM
  7. CEFPODOXIME (VANTIN) [Concomitant]
  8. SCOPOLAMINE BASE (TRANSDERM-SCOP) [Concomitant]
  9. CITALOPRAM (CELEXA) [Concomitant]
  10. GUAIFENESIN (MUCINEX)??? [Concomitant]
  11. ATROPINE (ATROPINE-CARE) [Concomitant]
  12. HYDROCODONE-HOMATROPINE (HYDROMET) [Concomitant]
  13. MORPHINE CONCENTRATE (ROXANOL) [Concomitant]
  14. REMERON [Concomitant]
     Active Substance: MIRTAZAPINE
  15. SENNOSIDES (SENNA) [Concomitant]
  16. GABAPENTIN (NEURONTIN) [Concomitant]
  17. HYDROCODONE-HOMATROPINE (HYCODAN/HYDROMET) [Concomitant]
  18. ALBUTEROL (PROAIR HFA) [Concomitant]

REACTIONS (3)
  - Increased upper airway secretion [None]
  - Pneumonia [None]
  - Sepsis [None]

NARRATIVE: CASE EVENT DATE: 20150205
